FAERS Safety Report 4691726-3 (Version None)
Quarter: 2005Q2

REPORT INFORMATION
  Report Type: 
  Country: None (occurrence: None)
  Receive Date: 20050616
  Receipt Date: 20050607
  Transmission Date: 20051028
  Serious: Yes (Other)
  Sender: FDA-Public Use
  Company Number: 200515338GDDC

PATIENT
  Age: 21 Year
  Sex: Male

DRUGS (5)
  1. KETEK [Suspect]
     Indication: ACUTE SINUSITIS
     Dosage: DOSE: 1X2 (UNKNOWN DOSE)
     Route: 048
     Dates: start: 20050412
  2. TRENTAL [Concomitant]
     Indication: VENOUS INSUFFICIENCY
     Route: 048
  3. VERMIDON [Concomitant]
     Indication: ACUTE SINUSITIS
     Dosage: DOSE: 2X1 (500/30)
     Route: 048
  4. CHLORHEXIDINE GLUCONATE [Concomitant]
     Indication: ACUTE SINUSITIS
     Dosage: DOSE: 4X2 (0.2% SPRAY)
     Route: 048
  5. CORASPIN [Concomitant]
     Route: 048

REACTIONS (4)
  - DYSPNOEA [None]
  - FATIGUE [None]
  - NAUSEA [None]
  - VOMITING [None]
